FAERS Safety Report 18856674 (Version 15)
Quarter: 2024Q1

REPORT INFORMATION
  Report Type: Report from Study
  Country: US (occurrence: US)
  Receive Date: 20210207
  Receipt Date: 20240329
  Transmission Date: 20240410
  Serious: Yes (Hospitalization, Other)
  Sender: FDA-Public Use
  Company Number: US-SHIRE-US202001757

PATIENT
  Age: 23 Year
  Sex: Male

DRUGS (5)
  1. RECOMBINATE [Suspect]
     Active Substance: ANTIHEMOPHILIC FACTOR, HUMAN RECOMBINANT
     Indication: Haemorrhage
     Dosage: 8000 INTERNATIONAL UNIT
     Route: 042
  2. RECOMBINATE [Suspect]
     Active Substance: ANTIHEMOPHILIC FACTOR, HUMAN RECOMBINANT
     Dosage: 6000 INTERNATIONAL UNIT
     Route: 042
  3. RECOMBINATE [Suspect]
     Active Substance: ANTIHEMOPHILIC FACTOR, HUMAN RECOMBINANT
     Dosage: 4000 INTERNATIONAL UNIT
     Route: 042
  4. RECOMBINATE [Suspect]
     Active Substance: ANTIHEMOPHILIC FACTOR, HUMAN RECOMBINANT
     Dosage: 1990 INTERNATIONAL UNIT
     Route: 065
  5. RECOMBINATE [Suspect]
     Active Substance: ANTIHEMOPHILIC FACTOR, HUMAN RECOMBINANT
     Dosage: 4000 INTERNATIONAL UNIT, QD
     Route: 050

REACTIONS (11)
  - Road traffic accident [Unknown]
  - Haemarthrosis [Recovering/Resolving]
  - Haemorrhage [Recovered/Resolved]
  - Haematuria [Unknown]
  - Epistaxis [Unknown]
  - Limb injury [Unknown]
  - Limb discomfort [Unknown]
  - Arthropathy [Unknown]
  - Pain [Unknown]
  - Post procedural complication [Unknown]
  - Product use issue [Unknown]

NARRATIVE: CASE EVENT DATE: 20210129
